FAERS Safety Report 20429443 (Version 6)
Quarter: 2025Q1

REPORT INFORMATION
  Report Type: Report from Study
  Country: US (occurrence: US)
  Receive Date: 20220204
  Receipt Date: 20250114
  Transmission Date: 20250409
  Serious: Yes (Other)
  Sender: ROCHE
  Company Number: US-ROCHE-3013032

PATIENT
  Age: 67 Year
  Sex: Female

DRUGS (25)
  1. HERCEPTIN [Suspect]
     Active Substance: TRASTUZUMAB
     Indication: Metastasis
     Dosage: INFUSE 360MG INTRAVENOUSLY EVERY 21 DAY(S)
     Route: 042
     Dates: start: 20180516, end: 202112
  2. HERCEPTIN [Suspect]
     Active Substance: TRASTUZUMAB
     Indication: Breast cancer female
     Route: 042
     Dates: start: 20150120
  3. HERCEPTIN [Suspect]
     Active Substance: TRASTUZUMAB
     Indication: Oestrogen receptor assay positive
  4. HERCEPTIN [Suspect]
     Active Substance: TRASTUZUMAB
     Indication: Lymphoma
  5. PERJETA [Suspect]
     Active Substance: PERTUZUMAB
     Indication: Breast cancer female
     Route: 042
  6. PERJETA [Suspect]
     Active Substance: PERTUZUMAB
     Indication: Metastasis
     Route: 042
  7. KADCYLA [Suspect]
     Active Substance: ADO-TRASTUZUMAB EMTANSINE
     Indication: Breast cancer female
     Route: 042
  8. KADCYLA [Suspect]
     Active Substance: ADO-TRASTUZUMAB EMTANSINE
     Indication: Metastasis
  9. KADCYLA [Suspect]
     Active Substance: ADO-TRASTUZUMAB EMTANSINE
     Indication: Lymphoma
  10. XELODA [Suspect]
     Active Substance: CAPECITABINE
     Indication: Metastasis
     Route: 048
     Dates: start: 20141229
  11. XELODA [Suspect]
     Active Substance: CAPECITABINE
     Indication: Breast cancer female
  12. VITAMIN D3 [Concomitant]
     Active Substance: CHOLECALCIFEROL
  13. SUCRALFATE [Concomitant]
     Active Substance: SUCRALFATE
  14. LISINOPRIL [Concomitant]
     Active Substance: LISINOPRIL
  15. HYDROXYZINE [Concomitant]
     Active Substance: HYDROXYZINE HYDROCHLORIDE
  16. ACETAMINOPHEN\HYDROCODONE [Concomitant]
     Active Substance: ACETAMINOPHEN\HYDROCODONE
  17. GABAPENTIN [Concomitant]
     Active Substance: GABAPENTIN
  18. FISH OIL [Concomitant]
     Active Substance: FISH OIL
  19. DECADRON [Concomitant]
     Active Substance: DEXAMETHASONE
  20. VITAMIN B12 [Concomitant]
     Active Substance: CYANOCOBALAMIN
  21. AMLODIPINE [Concomitant]
     Active Substance: AMLODIPINE BESYLATE
  22. CYTOXAN [Concomitant]
     Active Substance: CYCLOPHOSPHAMIDE
  23. GEMZAR [Concomitant]
     Active Substance: GEMCITABINE HYDROCHLORIDE
  24. FASLODEX [Concomitant]
     Active Substance: FULVESTRANT
  25. PACLITAXEL [Concomitant]
     Active Substance: PACLITAXEL

REACTIONS (15)
  - Pruritus [Unknown]
  - Cellulitis [Recovering/Resolving]
  - Rash [Unknown]
  - Peripheral swelling [Unknown]
  - Nodule [Unknown]
  - Dysphagia [Unknown]
  - Choking sensation [Unknown]
  - Abdominal discomfort [Unknown]
  - Throat tightness [Unknown]
  - Anxiety [Unknown]
  - Arthralgia [Unknown]
  - Tumour pain [Unknown]
  - Disease progression [Unknown]
  - Tonsillitis [Unknown]
  - Pruritus [Unknown]

NARRATIVE: CASE EVENT DATE: 20180607
